FAERS Safety Report 7139102-8 (Version None)
Quarter: 2010Q4

REPORT INFORMATION
  Report Type: 
  Country: None (occurrence: None)
  Receive Date: 20101206
  Receipt Date: 20101129
  Transmission Date: 20110411
  Serious: Yes (Other)
  Sender: FDA-Public Use
  Company Number: B0687210A

PATIENT
  Sex: Male
  Weight: 63 kg

DRUGS (23)
  1. ALKERAN [Suspect]
     Indication: STEM CELL TRANSPLANT
     Dosage: 350MG PER DAY
     Route: 042
     Dates: start: 20090630, end: 20090630
  2. CYMERIN [Suspect]
     Indication: STEM CELL TRANSPLANT
     Dosage: 350MG PER DAY
     Dates: start: 20090625, end: 20090626
  3. CYLOCIDE [Suspect]
     Indication: STEM CELL TRANSPLANT
     Dosage: 300MG PER DAY
     Dates: start: 20090626, end: 20090629
  4. NEUTROGIN [Concomitant]
     Dates: start: 20090703, end: 20090719
  5. SOLU-CORTEF [Concomitant]
     Dosage: 200MG PER DAY
     Dates: start: 20090702, end: 20090702
  6. FIRSTCIN [Concomitant]
     Dosage: 4G PER DAY
     Route: 042
     Dates: start: 20090702, end: 20090701
  7. GAMIMUNE N 5% [Concomitant]
     Dosage: 5G PER DAY
     Route: 042
     Dates: start: 20090702, end: 20090703
  8. EXACIN [Concomitant]
     Dosage: 400MG PER DAY
     Route: 042
     Dates: start: 20090706, end: 20090724
  9. MEROPENEM [Concomitant]
     Dosage: 2G PER DAY
     Route: 042
     Dates: start: 20090707, end: 20090724
  10. FUNGUARD [Concomitant]
     Dosage: 150MG PER DAY
     Route: 042
     Dates: start: 20090712, end: 20090724
  11. AMITRIPTYLINE HCL [Concomitant]
     Dosage: 30MG PER DAY
     Route: 048
     Dates: start: 20090702
  12. UNKNOWN MEDICATION [Concomitant]
     Dosage: 3G PER DAY
     Route: 048
     Dates: start: 20090703
  13. ALOSITOL [Concomitant]
     Dosage: 100MG PER DAY
     Route: 048
     Dates: start: 20090630
  14. PARIET [Concomitant]
     Dosage: 10MG PER DAY
     Route: 048
     Dates: start: 20090630
  15. PLAVIX [Concomitant]
     Dosage: 75MG PER DAY
     Route: 048
     Dates: start: 20090630
  16. NORVASC [Concomitant]
     Dosage: 5MG PER DAY
     Route: 048
     Dates: start: 20090630
  17. BAKTAR [Concomitant]
     Dosage: 1IUAX PER DAY
     Route: 048
     Dates: start: 20090630
  18. CARVEDILOL [Concomitant]
     Dosage: 10MG PER DAY
     Route: 048
     Dates: start: 20090630
  19. ITRIZOLE [Concomitant]
     Dosage: 20ML PER DAY
     Route: 048
     Dates: start: 20090630
  20. JUVELA N [Concomitant]
     Dosage: 600MG PER DAY
     Route: 048
     Dates: start: 20090630
  21. UNKNOWN MEDICATION [Concomitant]
     Dosage: 1500MCG PER DAY
     Route: 048
     Dates: start: 20090630
  22. ITOROL [Concomitant]
     Dosage: 20MG PER DAY
     Route: 048
     Dates: start: 20090630
  23. GRANISETRON HCL [Concomitant]
     Dosage: 6MG PER DAY
     Route: 048
     Dates: start: 20090625, end: 20100703

REACTIONS (1)
  - BACTERAEMIA [None]
